FAERS Safety Report 7612171-4 (Version None)
Quarter: 2011Q3

REPORT INFORMATION
  Report Type: 
  Country: None (occurrence: None)
  Receive Date: 20110715
  Receipt Date: 20110708
  Transmission Date: 20111222
  Serious: Yes (Other)
  Sender: FDA-Public Use
  Company Number: US-B.I. PHARMACEUTICALS,INC./RIDGEFIELD-2011-DE-04027GD

PATIENT

DRUGS (5)
  1. WARFARIN SODIUM [Suspect]
     Indication: ANTICOAGULANT THERAPY
     Dosage: DOSE ADJUSTED TO MAINTAIN AN INR OF 1.5 TO 2.5
  2. DIPYRIDAMOLE [Suspect]
     Indication: ANTICOAGULANT THERAPY
     Dosage: 225 MG
  3. ASPIRIN [Suspect]
     Indication: ANTICOAGULANT THERAPY
     Dosage: 81 MG
  4. PROTON PUMP INHIBITOR [Concomitant]
     Indication: PROPHYLAXIS AGAINST GASTROINTESTINAL ULCER
     Route: 042
  5. PROTON PUMP INHIBITOR [Concomitant]
     Route: 048

REACTIONS (4)
  - LOWER GASTROINTESTINAL HAEMORRHAGE [None]
  - UPPER GASTROINTESTINAL HAEMORRHAGE [None]
  - COLONIC FISTULA [None]
  - GASTRIC FISTULA [None]
